FAERS Safety Report 9785237 (Version 1)
Quarter: 2013Q4

REPORT INFORMATION
  Report Type: Spontaneous
  Country: FR (occurrence: None)
  Receive Date: 20131226
  Receipt Date: 20131226
  Transmission Date: 20140711
  Serious: Yes (Hospitalization)
  Sender: FDA-Public Use
  Company Number: None

PATIENT
  Sex: 0

DRUGS (2)
  1. IRINOTECAN [Suspect]
     Dosage: 013
  2. DC BEAD [Concomitant]

REACTIONS (1)
  - Pancreatitis acute [None]
